FAERS Safety Report 9797487 (Version 1)
Quarter: 2014Q1

REPORT INFORMATION
  Report Type: Spontaneous
  Country: RU (occurrence: RU)
  Receive Date: 20140106
  Receipt Date: 20140106
  Transmission Date: 20141002
  Serious: Yes (Disabling)
  Sender: FDA-Public Use
  Company Number: PHHY2013RU152050

PATIENT
  Age: 53 Year
  Sex: Female

DRUGS (1)
  1. MIACALCIC NASAL [Suspect]
     Route: 006

REACTIONS (1)
  - Bone pain [Recovering/Resolving]
